FAERS Safety Report 18610219 (Version 2)
Quarter: 2021Q1

REPORT INFORMATION
  Report Type: Spontaneous
  Country: US (occurrence: US)
  Receive Date: 20201214
  Receipt Date: 20210203
  Transmission Date: 20210419
  Serious: Yes (Other)
  Sender: FDA-Public Use
  Company Number: US-BAYER-2020-268100

PATIENT
  Age: 31 Year
  Sex: Female

DRUGS (1)
  1. MIRENA [Suspect]
     Active Substance: LEVONORGESTREL
     Indication: CONTRACEPTION
     Dosage: 20?G PER DAY, CONTINUOUSLY
     Route: 015
     Dates: start: 20200817, end: 20201005

REACTIONS (4)
  - Ovarian cyst [None]
  - Device dislocation [Recovered/Resolved]
  - Pelvic fluid collection [None]
  - Uterine leiomyoma [None]

NARRATIVE: CASE EVENT DATE: 20201005
